FAERS Safety Report 6394225-6 (Version None)
Quarter: 2009Q4

REPORT INFORMATION
  Report Type: 
  Country: None (occurrence: None)
  Receive Date: 20091008
  Receipt Date: 20090930
  Transmission Date: 20100525
  Serious: Yes (Hospitalization, Other)
  Sender: FDA-Public Use
  Company Number: US-AMGEN-QUU354626

PATIENT
  Sex: Female
  Weight: 45.4 kg

DRUGS (7)
  1. ENBREL [Suspect]
     Indication: RHEUMATOID ARTHRITIS
     Route: 058
     Dates: start: 20050401, end: 20080401
  2. PREDNISONE [Suspect]
     Dates: start: 20040101
  3. DEPO-MEDROL [Suspect]
  4. ULTRACET [Concomitant]
     Dates: start: 20040101
  5. CELEBREX [Concomitant]
     Dates: start: 20040101
  6. UNSPECIFIED NON-STEROIDAL ANTI-INFLAMMATORY AGENT [Concomitant]
  7. DEPO-MEDROL [Concomitant]
     Dates: start: 20041101

REACTIONS (5)
  - DISSEMINATED TUBERCULOSIS [None]
  - EMPYEMA [None]
  - HYDRONEPHROSIS [None]
  - NEPHROLITHIASIS [None]
  - SPLENOMEGALY [None]
